FAERS Safety Report 14469635 (Version 2)
Quarter: 2018Q1

REPORT INFORMATION
  Report Type: Spontaneous
  Country: US (occurrence: US)
  Receive Date: 20180131
  Receipt Date: 20180209
  Transmission Date: 20180509
  Serious: Yes (Hospitalization, Other)
  Sender: FDA-Public Use
  Company Number: US-BAYER-2018-013199

PATIENT
  Age: 95 Year
  Weight: 84.81 kg

DRUGS (1)
  1. BAYER ASPIRIN QUICK RELEASE CRYSTALS [Suspect]
     Active Substance: ASPIRIN
     Dosage: UNK
     Route: 048
     Dates: start: 2008

REACTIONS (8)
  - Cerebrovascular accident [Unknown]
  - Off label use [Unknown]
  - Transient ischaemic attack [None]
  - Off label use [Unknown]
  - Product use in unapproved indication [Unknown]
  - Product use in unapproved indication [None]
  - Drug effective for unapproved indication [Unknown]
  - Coronary artery bypass [None]

NARRATIVE: CASE EVENT DATE: 2008
